FAERS Safety Report 8150838-2 (Version None)
Quarter: 2012Q1

REPORT INFORMATION
  Report Type: 
  Country: None (occurrence: None)
  Receive Date: 20120220
  Receipt Date: 20120207
  Transmission Date: 20120608
  Serious: Yes (Hospitalization)
  Sender: FDA-Public Use
  Company Number: DE-BAXTER-2012BH002688

PATIENT
  Age: 64 Year
  Sex: Male
  Weight: 85 kg

DRUGS (1)
  1. TISSEEL VH KIT [Suspect]
     Indication: WOUND CLOSURE
     Route: 065
     Dates: start: 20111031, end: 20111031

REACTIONS (1)
  - WOUND INFECTION [None]
